FAERS Safety Report 5140197-1 (Version None)
Quarter: 2006Q4

REPORT INFORMATION
  Report Type: 
  Country: None (occurrence: None)
  Receive Date: 20061025
  Receipt Date: 20061019
  Transmission Date: 20070319
  Serious: Yes (Death, Other)
  Sender: FDA-Public Use
  Company Number: 163-20785-06100922

PATIENT
  Age: 81 Year
  Sex: Female

DRUGS (1)
  1. THALOMID [Suspect]
     Indication: THYROID CANCER
     Dosage: 100 MG, 2 IN 1 D, ORAL
     Route: 048
     Dates: start: 20060728, end: 20060811

REACTIONS (3)
  - HYPERTENSION [None]
  - INSULIN-REQUIRING TYPE II DIABETES MELLITUS [None]
  - THYROID CANCER METASTATIC [None]
